FAERS Safety Report 14684598 (Version 2)
Quarter: 2019Q2

REPORT INFORMATION
  Report Type: Spontaneous
  Country: DE (occurrence: DE)
  Receive Date: 20180327
  Receipt Date: 20190516
  Transmission Date: 20190711
  Serious: Yes (Hospitalization, Other)
  Sender: FDA-Public Use
  Company Number: DE-MYLANLABS-2018M1019414

PATIENT
  Age: 29 Year
  Sex: Female
  Weight: 62 kg

DRUGS (6)
  1. GILENYA [Suspect]
     Active Substance: FINGOLIMOD HYDROCHLORIDE
     Indication: MULTIPLE SCLEROSIS
     Dosage: 0.5 MG, QD
     Route: 048
     Dates: start: 20141118, end: 20150110
  2. LEVETIRACETAM. [Suspect]
     Active Substance: LEVETIRACETAM
     Indication: GENERALISED TONIC-CLONIC SEIZURE
     Dosage: UNK
     Route: 065
  3. AMISULPRIDE [Concomitant]
     Active Substance: AMISULPRIDE
     Indication: DEPRESSION
     Dosage: 100 OT, UNK
     Route: 065
     Dates: start: 20150408
  4. ACICLOVIR [Suspect]
     Active Substance: ACYCLOVIR
     Indication: PRODUCT USED FOR UNKNOWN INDICATION
     Dosage: UNK
     Route: 065
  5. METHYLPREDNISOLONE. [Suspect]
     Active Substance: METHYLPREDNISOLONE
     Indication: MULTIPLE SCLEROSIS
     Dosage: 1000 MG, QD
     Route: 042
     Dates: start: 20150105, end: 20150109
  6. CEFTRIAXONE. [Suspect]
     Active Substance: CEFTRIAXONE
     Indication: PRODUCT USED FOR UNKNOWN INDICATION
     Dosage: UNK
     Route: 065

REACTIONS (32)
  - Organic brain syndrome [Unknown]
  - Reversible cerebral vasoconstriction syndrome [Recovered/Resolved with Sequelae]
  - Pleocytosis [Unknown]
  - Partial seizures [Not Recovered/Not Resolved]
  - Diplopia [Not Recovered/Not Resolved]
  - Visual impairment [Unknown]
  - Focal dyscognitive seizures [Not Recovered/Not Resolved]
  - Disorientation [Unknown]
  - Rubella antibody positive [Unknown]
  - Nausea [Not Recovered/Not Resolved]
  - Vertigo [Not Recovered/Not Resolved]
  - Hemiparesis [Unknown]
  - Hypoaesthesia [Unknown]
  - Demyelination [Unknown]
  - Headache [Not Recovered/Not Resolved]
  - Agitation [Unknown]
  - Thunderclap headache [Unknown]
  - Central nervous system lesion [Unknown]
  - Cerebrovascular accident [Recovered/Resolved with Sequelae]
  - Vision blurred [Unknown]
  - Cognitive disorder [Recovering/Resolving]
  - Blood brain barrier defect [Unknown]
  - Amnesia [Unknown]
  - CSF measles antibody positive [Unknown]
  - Cerebral artery stenosis [Unknown]
  - Hemianopia [Unknown]
  - Epilepsy [Not Recovered/Not Resolved]
  - CSF protein increased [Unknown]
  - Sensory loss [Unknown]
  - Confusional state [Unknown]
  - Limb discomfort [Unknown]
  - Loss of consciousness [Recovered/Resolved with Sequelae]

NARRATIVE: CASE EVENT DATE: 20150107
